FAERS Safety Report 8773465 (Version 2)
Quarter: 2012Q4

REPORT INFORMATION
  Report Type: 
  Country: GB (occurrence: GB)
  Receive Date: 20120907
  Receipt Date: 20120907
  Transmission Date: 20130627
  Serious: Yes (Other)
  Sender: FDA-Public Use
  Company Number: PHFR2012GB001221

PATIENT
  Sex: Male

DRUGS (2)
  1. CLOZARIL [Suspect]
     Indication: SCHIZOPHRENIA
     Dosage: 375 mg, daily
     Route: 048
     Dates: start: 20110310, end: 20120215
  2. DOMOFOXINO XL [Concomitant]
     Dosage: 225 mg, UNK
     Route: 048
     Dates: start: 201107

REACTIONS (3)
  - Sexual dysfunction [Unknown]
  - Blood prolactin increased [Unknown]
  - Depressed mood [Recovering/Resolving]
